FAERS Safety Report 16945698 (Version 1)
Quarter: 2019Q4

REPORT INFORMATION
  Report Type: Spontaneous
  Country: GB (occurrence: GB)
  Receive Date: 20191022
  Receipt Date: 20191022
  Transmission Date: 20200122
  Serious: Yes (Other)
  Sender: FDA-Public Use
  Company Number: GB-MYLANLABS-2019M1099891

PATIENT
  Age: 71 Year
  Sex: Female
  Weight: 63.1 kg

DRUGS (1)
  1. AMLODIPINE [Suspect]
     Active Substance: AMLODIPINE BESYLATE
     Indication: BLOOD PRESSURE ABNORMAL
     Dosage: 5 MILLIGRAM DAILY;
     Dates: start: 20170909, end: 20190910

REACTIONS (8)
  - Taste disorder [Unknown]
  - Contusion [Unknown]
  - Adverse event [Unknown]
  - Heart rate increased [Unknown]
  - Nausea [Unknown]
  - Arrhythmia [Unknown]
  - Muscle spasms [Unknown]
  - Hot flush [Unknown]
